FAERS Safety Report 4716465-1 (Version None)
Quarter: 2005Q3

REPORT INFORMATION
  Report Type: 
  Country: None (occurrence: None)
  Receive Date: 20050714
  Receipt Date: 20050623
  Transmission Date: 20060218
  Serious: Yes (Hospitalization)
  Sender: FDA-Public Use
  Company Number: 2005092533

PATIENT
  Age: 4 Year
  Sex: Male
  Weight: 11.3 kg

DRUGS (2)
  1. GENOTONORM (SOMATROPIN) [Suspect]
     Indication: BODY HEIGHT BELOW NORMAL
     Dosage: SEE IMAGE
     Dates: start: 20040217, end: 20040501
  2. GENOTONORM (SOMATROPIN) [Suspect]
     Indication: BODY HEIGHT BELOW NORMAL
     Dosage: SEE IMAGE
     Dates: start: 20040501

REACTIONS (2)
  - BRONCHOPNEUMOPATHY [None]
  - PYREXIA [None]
